FAERS Safety Report 17551002 (Version 1)
Quarter: 2020Q1

REPORT INFORMATION
  Report Type: Spontaneous
  Country: JP (occurrence: JP)
  Receive Date: 20200317
  Receipt Date: 20200317
  Transmission Date: 20200409
  Serious: Yes (Hospitalization, Other)
  Sender: FDA-Public Use
  Company Number: JP-ACTELION-A-CH2020-202270

PATIENT
  Age: 48 Year
  Sex: Female

DRUGS (2)
  1. SILDENAFIL. [Concomitant]
     Active Substance: SILDENAFIL
  2. BOSENTAN. [Suspect]
     Active Substance: BOSENTAN
     Indication: THROMBOANGIITIS OBLITERANS
     Route: 048

REACTIONS (7)
  - Leg amputation [Unknown]
  - Pain in extremity [Unknown]
  - Drug ineffective for unapproved indication [Unknown]
  - Ischaemia [Unknown]
  - Peripheral vascular disorder [Unknown]
  - Concomitant disease aggravated [Unknown]
  - Gangrene [Unknown]
